FAERS Safety Report 10310639 (Version 3)
Quarter: 2015Q2

REPORT INFORMATION
  Report Type: Spontaneous
  Country: US (occurrence: US)
  Receive Date: 20140717
  Receipt Date: 20150612
  Transmission Date: 20150821
  Serious: No
  Sender: FDA-Public Use
  Company Number: US-PFIZER INC-2014196324

PATIENT
  Age: 80 Year
  Sex: Male
  Weight: 77.55 kg

DRUGS (3)
  1. SUTENT [Suspect]
     Active Substance: SUNITINIB MALATE
     Indication: RENAL CANCER METASTATIC
     Dosage: 50 MG DAILY 4 WEEKS OUT OF EVERY 6 WEEKS
     Route: 048
     Dates: start: 200908
  2. CENTRUM SILVER [Concomitant]
     Active Substance: VITAMINS
     Dosage: UNK
  3. SYNTHROID [Concomitant]
     Active Substance: LEVOTHYROXINE SODIUM
     Dosage: UNK

REACTIONS (7)
  - Fatigue [Unknown]
  - Disease progression [Unknown]
  - Renal cancer metastatic [Unknown]
  - Ureteral disorder [Unknown]
  - Pain in extremity [Unknown]
  - Palmar-plantar erythrodysaesthesia syndrome [Recovered/Resolved]
  - Prostatic specific antigen increased [Unknown]
